FAERS Safety Report 19913515 (Version 3)
Quarter: 2021Q4

REPORT INFORMATION
  Report Type: Spontaneous
  Country: IT (occurrence: IT)
  Receive Date: 20211004
  Receipt Date: 20211027
  Transmission Date: 20220303
  Serious: Yes (Hospitalization)
  Sender: FDA-Public Use
  Company Number: IT-LUNDBECK-DKLU3033731

PATIENT
  Age: 65 Year
  Sex: Female
  Weight: 55 kg

DRUGS (7)
  1. CITALOPRAM [Suspect]
     Active Substance: CITALOPRAM HYDROBROMIDE
     Indication: Mental disorder
     Dosage: 8 MILLIGRAM, QD (UNDERDOSE: 8 MILLIGRAM OF CITALOPRAM DAILY )
     Route: 048
     Dates: start: 202006, end: 202010
  2. CITALOPRAM [Suspect]
     Active Substance: CITALOPRAM HYDROBROMIDE
     Indication: Major depression
  3. VORTIOXETINE [Suspect]
     Active Substance: VORTIOXETINE
     Indication: Mental disorder
     Dosage: 10 MILLIGRAM, QD
     Route: 065
  4. VORTIOXETINE [Suspect]
     Active Substance: VORTIOXETINE
     Indication: Mental disorder
     Dosage: 5 MILLIGRAM, QD
     Route: 048
     Dates: start: 202010
  5. VORTIOXETINE [Suspect]
     Active Substance: VORTIOXETINE
     Indication: Major depression
  6. ZOLPIDEM [Concomitant]
     Active Substance: ZOLPIDEM TARTRATE
     Indication: Insomnia
     Dosage: 10 MILLIGRAM
     Route: 048
  7. DELORAZEPAM [Concomitant]
     Active Substance: DELORAZEPAM
     Indication: Anxiety
     Dosage: 2 MILLIGRAM
     Route: 042

REACTIONS (7)
  - Flat affect [Unknown]
  - Restlessness [Unknown]
  - Nausea [Recovered/Resolved]
  - Akathisia [Unknown]
  - Therapeutic response decreased [Unknown]
  - Product use in unapproved indication [Unknown]
  - Prescribed underdose [Unknown]
